FAERS Safety Report 25886653 (Version 4)
Quarter: 2025Q4

REPORT INFORMATION
  Report Type: Spontaneous
  Country: JP (occurrence: JP)
  Receive Date: 20251006
  Receipt Date: 20251226
  Transmission Date: 20260117
  Serious: Yes (Death, Life-Threatening, Hospitalization, Other)
  Sender: ROCHE
  Company Number: JP-CHUGAI-2025031440

PATIENT
  Age: 72 Year
  Sex: Female
  Weight: 57 kg

DRUGS (4)
  1. TECENTRIQ [Suspect]
     Active Substance: ATEZOLIZUMAB
     Indication: Hepatocellular carcinoma
     Route: 041
     Dates: start: 20250904, end: 20250904
  2. AVASTIN [Suspect]
     Active Substance: BEVACIZUMAB
     Indication: Hepatocellular carcinoma
     Dosage: 858 MILLIGRAM, ONCE/3WEEKS
     Route: 041
     Dates: start: 20250904, end: 20250904
  3. ACTEMRA [Suspect]
     Active Substance: TOCILIZUMAB
     Indication: Cytokine release syndrome
     Dosage: 460 MILLIGRAM
  4. ACTEMRA [Suspect]
     Active Substance: TOCILIZUMAB
     Dosage: 460 MILLIGRAM

REACTIONS (12)
  - Cytokine release syndrome [Recovered/Resolved with Sequelae]
  - Multiple organ dysfunction syndrome [Fatal]
  - Fall [Unknown]
  - Haemophagocytic lymphohistiocytosis [Recovered/Resolved]
  - Pancreatitis [Unknown]
  - Intestinal ischaemia [Unknown]
  - Gastrointestinal haemorrhage [Unknown]
  - Hepatocellular carcinoma [Fatal]
  - Acidosis [Unknown]
  - Sepsis [Unknown]
  - Dehydration [Unknown]
  - Blood pressure decreased [Unknown]

NARRATIVE: CASE EVENT DATE: 20250915
